FAERS Safety Report 4382413-X (Version None)
Quarter: 2004Q2

REPORT INFORMATION
  Report Type: 
  Country: None (occurrence: None)
  Receive Date: 20040617
  Receipt Date: 20040607
  Transmission Date: 20050107
  Serious: Yes (Life-Threatening, Hospitalization)
  Sender: FDA-Public Use
  Company Number: 2004-06-0277

PATIENT
  Age: 58 Year
  Sex: Female

DRUGS (3)
  1. CELESTONE [Suspect]
     Indication: ARTHRALGIA
     Dosage: 2 MG ORAL
     Route: 048
     Dates: start: 20030219, end: 20030219
  2. MIOREL GELULE (THIOCOLCHICOSIDE) [Concomitant]
  3. MYOLASTAN [Concomitant]

REACTIONS (1)
  - ANGIONEUROTIC OEDEMA [None]
